FAERS Safety Report 19892805 (Version 1)
Quarter: 2021Q3

REPORT INFORMATION
  Report Type: Other
  Country: JP (occurrence: JP)
  Receive Date: 20210928
  Receipt Date: 20210928
  Transmission Date: 20211014
  Serious: Yes (Other)
  Sender: FDA-Public Use
  Company Number: JP-B.BRAUN MEDICAL INC.-2118917

PATIENT
  Age: 21 Year
  Sex: Female

DRUGS (2)
  1. CEFDINIR. [Suspect]
     Active Substance: CEFDINIR
  2. ACETAMINOPHEN. [Suspect]
     Active Substance: ACETAMINOPHEN
     Indication: MASTITIS POSTPARTUM

REACTIONS (5)
  - Acute generalised exanthematous pustulosis [None]
  - Drug ineffective [None]
  - Tachycardia [None]
  - Hypotension [None]
  - Tachypnoea [None]
